FAERS Safety Report 16466736 (Version 1)
Quarter: 2019Q2

REPORT INFORMATION
  Report Type: Report from Study
  Country: US (occurrence: US)
  Receive Date: 20190623
  Receipt Date: 20190623
  Transmission Date: 20190711
  Serious: Yes (Other)
  Sender: FDA-Public Use
  Company Number: US-JNJFOC-20180505992

PATIENT
  Age: 70 Year
  Sex: Female
  Weight: 49 kg

DRUGS (8)
  1. LEXAPRO [Concomitant]
     Active Substance: ESCITALOPRAM OXALATE
     Indication: ANXIETY
  2. MULTIVITAMINS [Concomitant]
     Active Substance: VITAMINS
     Indication: VITAMIN SUPPLEMENTATION
  3. VITAMIN D [Concomitant]
     Active Substance: VITAMIN D NOS
     Indication: VITAMIN SUPPLEMENTATION
  4. IMBRUVICA [Suspect]
     Active Substance: IBRUTINIB
     Indication: WALDENSTROM^S MACROGLOBULINAEMIA
     Route: 048
     Dates: start: 20180409
  5. IMBRUVICA [Suspect]
     Active Substance: IBRUTINIB
     Indication: WALDENSTROM^S MACROGLOBULINAEMIA
     Route: 048
     Dates: start: 20180604
  6. PROGESTERONE. [Concomitant]
     Active Substance: PROGESTERONE
     Indication: HORMONE SUPPRESSION THERAPY
  7. ESTROGEL [Concomitant]
     Active Substance: ESTRADIOL
     Indication: HORMONE SUPPRESSION THERAPY
  8. IMBRUVICA [Suspect]
     Active Substance: IBRUTINIB
     Route: 048
     Dates: start: 20180506

REACTIONS (16)
  - Pyrexia [Unknown]
  - White blood cell count increased [Unknown]
  - Dysuria [Unknown]
  - Fatigue [Unknown]
  - Red blood cell count decreased [Not Recovered/Not Resolved]
  - Weight decreased [Unknown]
  - Pain [Unknown]
  - Adverse drug reaction [Unknown]
  - Anxiety [Unknown]
  - Onychoclasis [Unknown]
  - Urinary tract infection [Recovering/Resolving]
  - Asthenia [Unknown]
  - White blood cell count decreased [Not Recovered/Not Resolved]
  - Platelet count decreased [Not Recovered/Not Resolved]
  - Disease progression [Unknown]
  - Blood immunoglobulin M increased [Not Recovered/Not Resolved]

NARRATIVE: CASE EVENT DATE: 2018
